FAERS Safety Report 25656538 (Version 1)
Quarter: 2025Q3

REPORT INFORMATION
  Report Type: Spontaneous
  Country: IN (occurrence: IN)
  Receive Date: 20250807
  Receipt Date: 20250807
  Transmission Date: 20251021
  Serious: Yes (Other)
  Sender: Harrow Health
  Company Number: IN-HARROW-HAR-2025-IN-00576

PATIENT
  Age: 47 Year
  Sex: Male

DRUGS (2)
  1. NATACYN [Suspect]
     Active Substance: NATAMYCIN
     Indication: Keratitis fungal
     Route: 047
     Dates: start: 2025
  2. Oral ketoconazole [Concomitant]
     Route: 048

REACTIONS (2)
  - Corneal perforation [Recovered/Resolved]
  - Drug ineffective [Unknown]
